FAERS Safety Report 25994069 (Version 1)
Quarter: 2025Q4

REPORT INFORMATION
  Report Type: Report from Study
  Country: US (occurrence: US)
  Receive Date: 20251104
  Receipt Date: 20251104
  Transmission Date: 20260117
  Serious: Yes (Hospitalization)
  Sender: RECORDATI
  Company Number: US-ORPHANEU-2025006111

PATIENT
  Age: 65 Year
  Sex: Male
  Weight: 108.84 kg

DRUGS (18)
  1. ISTURISA [Suspect]
     Active Substance: OSILODROSTAT PHOSPHATE
     Indication: Pituitary-dependent Cushing^s syndrome
     Dosage: 2 MG, BID (TABLET)
     Route: 048
     Dates: start: 20250505, end: 2025
  2. ISTURISA [Suspect]
     Active Substance: OSILODROSTAT PHOSPHATE
     Dosage: 2 MG, BID (TABLET)
     Route: 048
     Dates: start: 2025, end: 2025
  3. ATORVASTATIN CALCIUM [Concomitant]
     Active Substance: ATORVASTATIN CALCIUM
     Indication: Product used for unknown indication
     Dosage: 10 MG, QD (TABLET)
     Route: 048
     Dates: start: 20150101
  4. TOUJEO MAX [Concomitant]
     Active Substance: INSULIN GLARGINE
     Indication: Product used for unknown indication
     Dosage: 40 DOSAGE FORM (UNITS), QD (BEDTIME)
     Route: 058
     Dates: start: 20150101
  5. GABAPENTIN [Concomitant]
     Active Substance: GABAPENTIN
     Indication: Product used for unknown indication
     Dosage: 600 MG, TID (TABLET)
     Route: 048
     Dates: start: 20150101
  6. LEVOTHYROXINE SODIUM [Concomitant]
     Active Substance: LEVOTHYROXINE SODIUM
     Indication: Product used for unknown indication
     Dosage: 137 MICROGRAM, DAILY (TABLET)
     Route: 048
     Dates: start: 20150101
  7. OLMESARTAN MEDOXOMIL AND HYDROCHLOROTHIAZIDE [Concomitant]
     Active Substance: HYDROCHLOROTHIAZIDE\OLMESARTAN MEDOXOMIL
     Indication: Product used for unknown indication
     Dosage: 40-12.5 MG, DAILY
     Route: 048
     Dates: start: 20150101
  8. METFORMIN HYDROCHLORIDE [Concomitant]
     Active Substance: METFORMIN HYDROCHLORIDE
     Indication: Product used for unknown indication
     Dosage: 500 MG, QD (TABLET)
     Route: 048
     Dates: start: 20150101
  9. ANAGRELIDE HYDROCHLORIDE [Concomitant]
     Active Substance: ANAGRELIDE HYDROCHLORIDE
     Indication: Product used for unknown indication
     Dosage: 0.5 MG, QID (CAPSULE)
     Route: 048
     Dates: start: 20150101
  10. LASIX [Concomitant]
     Active Substance: FUROSEMIDE
     Indication: Product used for unknown indication
     Dosage: 20 MG, BID (TABLET)
     Route: 048
     Dates: start: 20150101
  11. LIOTHYRONINE SODIUM [Concomitant]
     Active Substance: LIOTHYRONINE SODIUM
     Indication: Product used for unknown indication
     Dosage: 5 MICROGRAM, DAILY (TABLET)
     Route: 048
     Dates: start: 20150101
  12. BYSTOLIC [Concomitant]
     Active Substance: NEBIVOLOL HYDROCHLORIDE
     Indication: Product used for unknown indication
     Dosage: 20 MG, QD (TABLET)
     Route: 048
     Dates: start: 20150101
  13. XARELTO [Concomitant]
     Active Substance: RIVAROXABAN
     Indication: Product used for unknown indication
     Dosage: 20 MG, QD (TABLET)
     Route: 048
     Dates: start: 20150101
  14. OZEMPIC [Concomitant]
     Active Substance: SEMAGLUTIDE
     Indication: Product used for unknown indication
     Dosage: 8 MG/3ML, QW, SUBCUTANEOUS SOLUTION (2 MG/DOSE)
     Route: 058
     Dates: start: 20150101
  15. NOVOLOG [Concomitant]
     Active Substance: INSULIN ASPART
     Indication: Product used for unknown indication
     Dosage: 30-40 UNITS (SUBCUTANEOUS SOLUTION), TID
     Route: 058
     Dates: start: 20150101
  16. VITAMIN B12 [Concomitant]
     Active Substance: CYANOCOBALAMIN
     Indication: Product used for unknown indication
     Dosage: 1000 MICROGRAM, QD (TABLET)
     Route: 048
     Dates: start: 20150101
  17. VITAMIN D3 [Concomitant]
     Active Substance: CHOLECALCIFEROL
     Indication: Product used for unknown indication
     Dosage: 50 MICROGRAM, QD ( TABLET)
     Route: 048
     Dates: start: 20150101
  18. OMEPRAZOLE [Concomitant]
     Active Substance: OMEPRAZOLE
     Indication: Product used for unknown indication
     Dosage: 20 MG, DAILY (DELAYED RELEASE CAPSULE)
     Route: 048
     Dates: start: 20150101

REACTIONS (3)
  - Renal disorder [Not Recovered/Not Resolved]
  - Blood urine present [Not Recovered/Not Resolved]
  - Back pain [Not Recovered/Not Resolved]

NARRATIVE: CASE EVENT DATE: 20251015
